FAERS Safety Report 9908075 (Version 2)
Quarter: 2014Q2

REPORT INFORMATION
  Report Type: Spontaneous
  Country: FR (occurrence: FR)
  Receive Date: 20140219
  Receipt Date: 20140513
  Transmission Date: 20141212
  Serious: Yes (Hospitalization)
  Sender: FDA-Public Use
  Company Number: FR-ASTRAZENECA-2014SE10457

PATIENT
  Age: 33279 Day
  Sex: Female

DRUGS (3)
  1. BRILIQUE [Suspect]
     Indication: ACUTE CORONARY SYNDROME
     Route: 048
     Dates: start: 20140130, end: 20140201
  2. KARDEGIC [Concomitant]
     Indication: ACUTE CORONARY SYNDROME
     Route: 048
     Dates: start: 20140129
  3. HEPARIN [Concomitant]
     Indication: ACUTE PULMONARY OEDEMA
     Route: 040
     Dates: start: 20140129

REACTIONS (1)
  - Thrombocytopenia [Recovered/Resolved]
